FAERS Safety Report 8009982-2 (Version None)
Quarter: 2011Q4

REPORT INFORMATION
  Report Type: 
  Country: None (occurrence: None)
  Receive Date: 20111228
  Receipt Date: 20111220
  Transmission Date: 20120403
  Serious: Yes (Other)
  Sender: FDA-Public Use
  Company Number: US-JNJFOC-20111210821

PATIENT
  Sex: Female

DRUGS (24)
  1. DOXORUBICIN HCL [Suspect]
     Indication: BREAST CANCER
     Dosage: EVERY 2 WEEKS
     Route: 042
  2. PEGFILGRASTIM [Suspect]
     Route: 058
  3. BEVACIZUMAB [Suspect]
     Indication: BREAST CANCER
     Dosage: CYCLES 1-4
     Route: 042
  4. CYCLOPHOSPHAMIDE [Suspect]
     Dosage: EVERY 2 WEEKS
     Route: 042
  5. BEVACIZUMAB [Suspect]
     Dosage: CYCLES 1-4
     Route: 042
  6. PACLITAXEL [Suspect]
     Route: 042
  7. CYCLOPHOSPHAMIDE [Suspect]
     Indication: BREAST CANCER
     Route: 042
  8. PEGFILGRASTIM [Suspect]
     Route: 058
  9. DOXORUBICIN HCL [Suspect]
     Dosage: EVERY 2 WEEKS
     Route: 042
  10. DOXORUBICIN HCL [Suspect]
     Dosage: EVERY 2 WEEKS
     Route: 042
  11. PEGFILGRASTIM [Suspect]
     Indication: BREAST CANCER
     Route: 058
  12. BEVACIZUMAB [Suspect]
     Dosage: CYCLES 1-4
     Route: 042
  13. BEVACIZUMAB [Suspect]
     Dosage: CYCLES 1-4
     Route: 042
  14. PACLITAXEL [Suspect]
     Indication: BREAST CANCER
     Route: 042
  15. CYCLOPHOSPHAMIDE [Suspect]
     Route: 042
  16. BEVACIZUMAB [Suspect]
     Dosage: CYCLES 1-4
     Route: 042
  17. PACLITAXEL [Suspect]
     Route: 042
  18. CYCLOPHOSPHAMIDE [Suspect]
     Route: 042
  19. PACLITAXEL [Suspect]
     Route: 042
  20. BEVACIZUMAB [Suspect]
     Dosage: CYCLES 1-4
     Route: 042
  21. BEVACIZUMAB [Suspect]
     Dosage: CYCLES 1-4
     Route: 042
  22. DOXORUBICIN HCL [Suspect]
     Dosage: EVERY 2 WEEKS
     Route: 042
  23. PEGFILGRASTIM [Suspect]
     Route: 058
  24. BEVACIZUMAB [Suspect]
     Dosage: CYCLES 1-4
     Route: 042

REACTIONS (1)
  - HYPERTENSION [None]
